FAERS Safety Report 20603747 (Version 1)
Quarter: 2022Q1

REPORT INFORMATION
  Report Type: Report from Study
  Country: US (occurrence: US)
  Receive Date: 20220316
  Receipt Date: 20220316
  Transmission Date: 20220424
  Serious: Yes (Death, Hospitalization)
  Sender: FDA-Public Use
  Company Number: US-HLS-202200263

PATIENT
  Age: 64 Year
  Sex: Female

DRUGS (4)
  1. CLOZAPINE [Suspect]
     Active Substance: CLOZAPINE
     Indication: Schizoaffective disorder
     Route: 065
  2. GLYCOPYRROLATE [Concomitant]
     Active Substance: GLYCOPYRROLATE
     Indication: Product used for unknown indication
     Route: 065
  3. BENZTROPINE [Concomitant]
     Active Substance: BENZTROPINE
     Indication: Product used for unknown indication
     Route: 065
  4. RISPERIDONE [Concomitant]
     Active Substance: RISPERIDONE
     Indication: Product used for unknown indication
     Route: 065

REACTIONS (19)
  - Renal ischaemia [Fatal]
  - Blood lactic acid increased [Fatal]
  - Abdominal compartment syndrome [Fatal]
  - Cerebrovascular accident [Fatal]
  - Mental status changes [Fatal]
  - Anaemia [Fatal]
  - Hypotension [Fatal]
  - Coeliac artery compression syndrome [Fatal]
  - Blood creatinine increased [Fatal]
  - Heart rate increased [Fatal]
  - Hyperkalaemia [Fatal]
  - Hypothermia [Fatal]
  - Inferior vena cava syndrome [Fatal]
  - Hemiparesis [Fatal]
  - Respiratory rate decreased [Fatal]
  - Metabolic acidosis [Fatal]
  - Reperfusion injury [Fatal]
  - Abdominal distension [Fatal]
  - Dysarthria [Fatal]
